FAERS Safety Report 11498022 (Version 1)
Quarter: 2015Q3

REPORT INFORMATION
  Report Type: Spontaneous
  Country: US (occurrence: US)
  Receive Date: 20150911
  Receipt Date: 20150911
  Transmission Date: 20151125
  Serious: Yes (Other)
  Sender: FDA-Public Use
  Company Number: US-BAYER-2015-413937

PATIENT
  Age: 52 Year
  Sex: Male
  Weight: 122.45 kg

DRUGS (2)
  1. ADVIL [Suspect]
     Active Substance: IBUPROFEN
  2. BAYER LOW DOSE [Suspect]
     Active Substance: ASPIRIN

REACTIONS (2)
  - Rectal haemorrhage [Unknown]
  - Labelled drug-drug interaction medication error [None]
